FAERS Safety Report 17648327 (Version 2)
Quarter: 2020Q2

REPORT INFORMATION
  Report Type: Spontaneous
  Country: US (occurrence: US)
  Receive Date: 20200408
  Receipt Date: 20200518
  Transmission Date: 20200713
  Serious: No
  Sender: FDA-Public Use
  Company Number: US-ASTRAZENECA-2020SE40319

PATIENT
  Age: 803 Month
  Sex: Male
  Weight: 104.3 kg

DRUGS (1)
  1. BYDUREON BCISE [Suspect]
     Active Substance: EXENATIDE
     Indication: TYPE 2 DIABETES MELLITUS
     Route: 058
     Dates: start: 201906

REACTIONS (8)
  - Device defective [Unknown]
  - Injection site discolouration [Recovered/Resolved]
  - Injection site haemorrhage [Recovered/Resolved]
  - Incorrect dose administered by device [Unknown]
  - Circumstance or information capable of leading to medication error [Unknown]
  - Needle issue [Unknown]
  - Injection site extravasation [Unknown]
  - Injection site mass [Unknown]

NARRATIVE: CASE EVENT DATE: 202002
